FAERS Safety Report 5106479-4 (Version None)
Quarter: 2006Q3

REPORT INFORMATION
  Report Type: 
  Country: None (occurrence: None)
  Receive Date: 20060918
  Receipt Date: 20060905
  Transmission Date: 20061208
  Serious: Yes (Hospitalization)
  Sender: FDA-Public Use
  Company Number: US-ROCHE-462303

PATIENT
  Sex: Female

DRUGS (1)
  1. BONIVA [Suspect]
     Indication: DRUG USE FOR UNKNOWN INDICATION
     Route: 042
     Dates: start: 20060415

REACTIONS (4)
  - ANAPHYLACTIC REACTION [None]
  - HEPATITIS [None]
  - HEPATOTOXICITY [None]
  - INFLUENZA LIKE ILLNESS [None]
